FAERS Safety Report 13027554 (Version 1)
Quarter: 2016Q4

REPORT INFORMATION
  Report Type: Spontaneous
  Country: US (occurrence: US)
  Receive Date: 20161214
  Receipt Date: 20161214
  Transmission Date: 20170207
  Serious: No
  Sender: FDA-Public Use
  Company Number: US-DUSA PHARMACEUTICALS, INC.-1060777

PATIENT
  Age: 50 Year
  Sex: Female

DRUGS (2)
  1. BLU-U BLUE LIGHT PHOTODYNAMIC THERAPY ILLUMINATOR [Suspect]
     Active Substance: DEVICE
     Dates: start: 20160823, end: 20160823
  2. LEVULAN KERASTICK [Suspect]
     Active Substance: AMINOLEVULINIC ACID HYDROCHLORIDE
     Indication: ACTINIC KERATOSIS
     Route: 061
     Dates: start: 20160823, end: 20160823

REACTIONS (1)
  - Headache [Unknown]

NARRATIVE: CASE EVENT DATE: 20160823
